FAERS Safety Report 4672453-5 (Version None)
Quarter: 2005Q2

REPORT INFORMATION
  Report Type: 
  Country: None (occurrence: None)
  Receive Date: 20050524
  Receipt Date: 20050411
  Transmission Date: 20051028
  Serious: Yes (Hospitalization)
  Sender: FDA-Public Use
  Company Number: PHRM2005FR01302

PATIENT
  Age: 84 Year
  Sex: Male
  Weight: 61 kg

DRUGS (5)
  1. ESOMEPRAZOLE [Concomitant]
     Indication: GASTRITIS
     Dosage: 1 DF, QD
     Route: 048
     Dates: start: 20040101
  2. VOLTAREN [Concomitant]
     Indication: OSTEOARTHRITIS
     Dosage: 75 MG, QD
     Route: 048
     Dates: start: 19990101
  3. VOLTAREN [Concomitant]
     Indication: OSTEOARTHRITIS
     Route: 061
     Dates: start: 19990101
  4. AVLOCARDYL [Suspect]
     Indication: HYPERTENSION
     Dosage: 40 MG, BID
     Route: 048
     Dates: start: 19990101
  5. COTAREG [Suspect]
     Indication: HYPERTENSION
     Dosage: 1 DF, QD
     Route: 048
     Dates: start: 20030504

REACTIONS (12)
  - ANTIBODY TEST ABNORMAL [None]
  - C-REACTIVE PROTEIN INCREASED [None]
  - GENERAL PHYSICAL CONDITION ABNORMAL [None]
  - HYPERGAMMAGLOBULINAEMIA [None]
  - HYPERPROTEINAEMIA [None]
  - LYMPHADENOPATHY [None]
  - LYMPHOCYTIC INFILTRATION [None]
  - LYMPHOCYTOSIS [None]
  - PRURIGO [None]
  - PRURITUS GENERALISED [None]
  - RASH PAPULAR [None]
  - SPLENOMEGALY [None]
